FAERS Safety Report 4644804-9 (Version None)
Quarter: 2005Q2

REPORT INFORMATION
  Report Type: 
  Country: None (occurrence: None)
  Receive Date: 20050426
  Receipt Date: 20050419
  Transmission Date: 20051028
  Serious: Yes (Other)
  Sender: FDA-Public Use
  Company Number: 200513439GDDC

PATIENT
  Age: 66 Year
  Sex: Male

DRUGS (2)
  1. NATRILIX [Suspect]
     Indication: HYPERTENSION
     Route: 048
     Dates: start: 19900101, end: 20050405
  2. ATENOLOL [Concomitant]
     Dates: start: 19900101

REACTIONS (4)
  - ANKYLOSING SPONDYLITIS [None]
  - JOINT STIFFNESS [None]
  - OEDEMA PERIPHERAL [None]
  - PAIN [None]
